FAERS Safety Report 13915940 (Version 1)
Quarter: 2017Q3

REPORT INFORMATION
  Report Type: Spontaneous
  Country: DE (occurrence: DE)
  Receive Date: 20170829
  Receipt Date: 20170829
  Transmission Date: 20171127
  Serious: Yes (Other)
  Sender: FDA-Public Use
  Company Number: DE-WEST-WARD PHARMACEUTICALS CORP.-DE-H14001-17-03147

PATIENT
  Age: 26 Year
  Sex: Female

DRUGS (2)
  1. IFOSFAMIDE. [Suspect]
     Active Substance: IFOSFAMIDE
     Indication: FIBROSARCOMA
     Route: 065
     Dates: start: 201503, end: 201505
  2. DOXORUBICIN [Suspect]
     Active Substance: DOXORUBICIN
     Indication: FIBROSARCOMA
     Route: 065
     Dates: start: 2015, end: 201505

REACTIONS (3)
  - Febrile neutropenia [Unknown]
  - Vomiting [Unknown]
  - Nausea [Unknown]

NARRATIVE: CASE EVENT DATE: 2015
